FAERS Safety Report 6370638-3 (Version None)
Quarter: 2009Q3

REPORT INFORMATION
  Report Type: 
  Country: None (occurrence: None)
  Receive Date: 20090921
  Receipt Date: 20090921
  Transmission Date: 20100115
  Serious: Yes (Hospitalization)
  Sender: FDA-Public Use
  Company Number: None

PATIENT
  Sex: Male
  Weight: 80.4 kg

DRUGS (9)
  1. DACARBAZINE [Suspect]
     Indication: MALIGNANT MELANOMA
     Dosage: 1000MG/M2 Q 3 WK
     Dates: start: 20090910
  2. DASATINIB [Suspect]
     Indication: MALIGNANT MELANOMA
     Dosage: 100MG QD DAY 2-19
     Dates: start: 20090911, end: 20090915
  3. METAPROLOL [Concomitant]
  4. ZOCOR [Concomitant]
  5. FINASTERIDE [Concomitant]
  6. CALCIUM [Concomitant]
  7. GLUCOSAMINE [Concomitant]
  8. ASPIRIN [Concomitant]
  9. VITAMINS [Concomitant]

REACTIONS (2)
  - HAEMOTHORAX [None]
  - PLEURAL EFFUSION [None]
